FAERS Safety Report 26100840 (Version 2)
Quarter: 2025Q4

REPORT INFORMATION
  Report Type: Spontaneous
  Country: EU (occurrence: EU)
  Receive Date: 20251128
  Receipt Date: 20251229
  Transmission Date: 20260117
  Serious: Yes (Hospitalization, Disabling, Other)
  Sender: MERCK SHARP & DOHME LLC
  Company Number: EU-009507513-2349520

PATIENT
  Age: 69 Year
  Sex: Male

DRUGS (1)
  1. KEYTRUDA [Suspect]
     Active Substance: PEMBROLIZUMAB
     Indication: Lung neoplasm malignant

REACTIONS (5)
  - Myocarditis-myositis-myasthenia gravis overlap syndrome [Unknown]
  - Surgery [Unknown]
  - Bedridden [Unknown]
  - Lung disorder [Not Recovered/Not Resolved]
  - Tracheostomy [Unknown]
